FAERS Safety Report 17112224 (Version 1)
Quarter: 2019Q4

REPORT INFORMATION
  Report Type: Spontaneous
  Country: US (occurrence: US)
  Receive Date: 20191204
  Receipt Date: 20191204
  Transmission Date: 20200122
  Serious: No
  Sender: FDA-Public Use
  Company Number: US-ASTRAZENECA-2019SF69985

PATIENT
  Age: 143 Day
  Sex: Male
  Weight: 5.4 kg

DRUGS (5)
  1. GRIPE WATER [Concomitant]
     Active Substance: DIETARY SUPPLEMENT
  2. POLY-VI-SOL WITH IRON [Concomitant]
     Active Substance: IRON\VITAMINS
  3. SIMILAC NEOSURE [Concomitant]
  4. GAS RELIEF [Concomitant]
     Active Substance: DIMETHICONE
  5. SYNAGIS [Suspect]
     Active Substance: PALIVIZUMAB
     Indication: ANTIVIRAL PROPHYLAXIS
     Route: 030
     Dates: start: 20191121

REACTIONS (1)
  - Irritability [Unknown]

NARRATIVE: CASE EVENT DATE: 20191121
